FAERS Safety Report 8607126-7 (Version None)
Quarter: 2012Q3

REPORT INFORMATION
  Report Type: 
  Country: None (occurrence: None)
  Receive Date: 20120821
  Receipt Date: 20120810
  Transmission Date: 20120928
  Serious: Yes (Hospitalization)
  Sender: FDA-Public Use
  Company Number: US-BIOGENIDEC-2012BI031836

PATIENT
  Sex: Male

DRUGS (2)
  1. TYSABRI [Suspect]
     Indication: MULTIPLE SCLEROSIS
     Route: 042
     Dates: start: 20100212, end: 20111116
  2. TYSABRI [Suspect]
     Route: 042
     Dates: start: 20120613

REACTIONS (2)
  - ABASIA [None]
  - ACTIVITIES OF DAILY LIVING IMPAIRED [None]
